FAERS Safety Report 10054051 (Version 3)
Quarter: 2014Q2

REPORT INFORMATION
  Report Type: Spontaneous
  Country: US (occurrence: US)
  Receive Date: 20140402
  Receipt Date: 20140414
  Transmission Date: 20141212
  Serious: Yes (Hospitalization)
  Sender: FDA-Public Use
  Company Number: CHPA2014US004601

PATIENT
  Age: 51 Year
  Sex: Female

DRUGS (2)
  1. PRIVATE LABEL STEP 1 21MG ACCT UNKNOWN [Suspect]
     Indication: SMOKING CESSATION THERAPY
     Dosage: 1 DF, QD X3 DAYS
     Route: 062
     Dates: start: 2012, end: 2013
  2. NICODERM [Concomitant]
     Dosage: 21 MG, UNK

REACTIONS (3)
  - Cerebrovascular accident [Recovered/Resolved]
  - Respiratory disorder [Recovered/Resolved]
  - Nicotine dependence [Unknown]
